FAERS Safety Report 8948230 (Version 1)
Quarter: 2012Q4

REPORT INFORMATION
  Report Type: Spontaneous
  Country: GB (occurrence: None)
  Receive Date: 20121127
  Receipt Date: 20121127
  Transmission Date: 20130627
  Serious: Yes (Life-Threatening)
  Sender: FDA-Public Use
  Company Number: GER/UKI/12/0026738

PATIENT
  Age: 67 Year
  Sex: Female

DRUGS (3)
  1. SERTRALINE (SERTRALINE) (SERTRALINE) [Suspect]
     Indication: DEPRESSION
     Route: 048
  2. ASPIRIN (ACETYLSALICYLIC ACID) [Suspect]
  3. CLOPIDOGREL (CLOPIDOGREL) [Concomitant]

REACTIONS (3)
  - Gastrointestinal haemorrhage [None]
  - Drug interaction [None]
  - Haemoglobin decreased [None]
